FAERS Safety Report 18265044 (Version 2)
Quarter: 2020Q3

REPORT INFORMATION
  Report Type: Spontaneous
  Country: NO (occurrence: NO)
  Receive Date: 20200915
  Receipt Date: 20200928
  Transmission Date: 20201103
  Serious: Yes (Life-Threatening, Hospitalization, Disabling)
  Sender: FDA-Public Use
  Company Number: NO-AMGEN-NORSP2020149091

PATIENT
  Age: 69 Year
  Sex: Male

DRUGS (2)
  1. METHOTREXATE PFIZER [METHOTREXATE] [Concomitant]
     Active Substance: METHOTREXATE
     Dosage: UNK
     Dates: start: 2008, end: 20200527
  2. ENBREL [Suspect]
     Active Substance: ETANERCEPT
     Indication: PSORIATIC ARTHROPATHY
     Dosage: 50 MG, WEEKLY
     Route: 058
     Dates: start: 2008, end: 20200527

REACTIONS (1)
  - Oropharyngeal neoplasm [Not Recovered/Not Resolved]

NARRATIVE: CASE EVENT DATE: 20200505
